FAERS Safety Report 6827549-6 (Version None)
Quarter: 2010Q3

REPORT INFORMATION
  Report Type: 
  Country: None (occurrence: None)
  Receive Date: 20100709
  Receipt Date: 20100701
  Transmission Date: 20110219
  Serious: Yes (Other)
  Sender: FDA-Public Use
  Company Number: GB-ABBOTT-10P-167-0646495-00

PATIENT
  Sex: Female
  Weight: 80.6 kg

DRUGS (10)
  1. HUMIRA [Suspect]
     Indication: CROHN'S DISEASE
     Route: 058
     Dates: start: 20090511
  2. HUMIRA [Suspect]
     Route: 058
  3. HUMIRA [Suspect]
  4. HUMIRA [Suspect]
  5. AZATHIOPRINE [Concomitant]
     Indication: CROHN'S DISEASE
     Route: 048
     Dates: start: 20010101
  6. PREDNISOLONE [Concomitant]
     Indication: CROHN'S DISEASE
     Dosage: DAILY, VARIOUS DOSES FOR YEARS
     Route: 048
  7. PENTASA [Concomitant]
     Indication: CROHN'S DISEASE
     Route: 048
     Dates: start: 20000101
  8. CALCICHEW D3 FORTE [Concomitant]
     Indication: OSTEOPENIA
     Route: 048
     Dates: start: 20010101
  9. RISENDRONATE [Concomitant]
     Indication: OSTEOPENIA
     Dates: start: 20030101
  10. MITRAZEPINE [Concomitant]
     Indication: DEPRESSION
     Route: 048

REACTIONS (2)
  - CROHN'S DISEASE [None]
  - WEIGHT INCREASED [None]
